FAERS Safety Report 20308721 (Version 2)
Quarter: 2022Q1

REPORT INFORMATION
  Report Type: Spontaneous
  Country: US (occurrence: US)
  Receive Date: 20220107
  Receipt Date: 20220110
  Transmission Date: 20220423
  Serious: Yes (Hospitalization)
  Sender: FDA-Public Use
  Company Number: US-ELI_LILLY_AND_COMPANY-US202112012067

PATIENT
  Age: 71 Year
  Sex: Female
  Weight: 76.7 kg

DRUGS (9)
  1. BARICITINIB [Suspect]
     Active Substance: BARICITINIB
     Indication: COVID-19
     Dosage: 4 MG, DAILY
     Route: 048
     Dates: start: 20211204, end: 20211217
  2. ALBUTEROL [Concomitant]
     Active Substance: ALBUTEROL
     Indication: Product used for unknown indication
     Dosage: .5 MG
     Dates: start: 20211204
  3. BISACODYL [Concomitant]
     Active Substance: BISACODYL
     Indication: Product used for unknown indication
     Dosage: 10 MG
     Dates: start: 20211204
  4. DEXTROMETHORPHAN\GUAIFENESIN [Concomitant]
     Active Substance: DEXTROMETHORPHAN\GUAIFENESIN
     Indication: Product used for unknown indication
     Dosage: 1 TAB
     Dates: start: 20211213
  5. DOCUSATE SODIUM [Concomitant]
     Active Substance: DOCUSATE SODIUM
     Indication: Product used for unknown indication
     Dosage: 100 MG
     Dates: start: 20211204
  6. MELATONIN [Concomitant]
     Active Substance: MELATONIN
     Indication: Product used for unknown indication
     Dosage: 6 MG
     Dates: start: 20211215
  7. PANTOPRAZOLE [Concomitant]
     Active Substance: PANTOPRAZOLE
     Indication: Product used for unknown indication
     Dosage: 20 MG
     Dates: start: 20211206
  8. POLYETHYLENE GLYCOLS [Concomitant]
     Active Substance: POLYETHYLENE GLYCOLS
     Indication: Product used for unknown indication
     Dosage: 17 G
     Dates: start: 20211204
  9. DECADRON [Concomitant]
     Active Substance: DEXAMETHASONE
     Indication: COVID-19

REACTIONS (2)
  - Pneumonia [Unknown]
  - Off label use [Unknown]

NARRATIVE: CASE EVENT DATE: 20211220
